FAERS Safety Report 4998780-X (Version None)
Quarter: 2006Q2

REPORT INFORMATION
  Report Type: 
  Country: None (occurrence: None)
  Receive Date: 20060510
  Receipt Date: 20060428
  Transmission Date: 20061013
  Serious: Yes (Hospitalization)
  Sender: FDA-Public Use
  Company Number: AU-MERCK-0605AUS00006

PATIENT
  Sex: Male

DRUGS (2)
  1. ZETIA [Suspect]
     Route: 048
     Dates: start: 20050501, end: 20051101
  2. ATORVASTATIN CALCIUM [Concomitant]
     Route: 048

REACTIONS (2)
  - LIVER FUNCTION TEST ABNORMAL [None]
  - MALAISE [None]
